FAERS Safety Report 8974886 (Version 1)
Quarter: 2012Q4

REPORT INFORMATION
  Report Type: Report from Study
  Country: NL (occurrence: NL)
  Receive Date: 20121219
  Receipt Date: 20121219
  Transmission Date: 20130627
  Serious: Yes (Hospitalization)
  Sender: FDA-Public Use
  Company Number: NL-BAXTER-2012BAX027342

PATIENT
  Age: 69 Year
  Sex: Male
  Weight: 84 kg

DRUGS (20)
  1. ENDOXAN I.V., POEDER VOOR OPLOSSING VOOR INJECTIE 200, 500, 1000 MG [Suspect]
     Indication: DIFFUSE LARGE B-CELL LYMPHOMA
     Route: 042
     Dates: start: 20081126
  2. ENDOXAN I.V., POEDER VOOR OPLOSSING VOOR INJECTIE 200, 500, 1000 MG [Suspect]
     Route: 042
     Dates: start: 20090122
  3. ENDOXAN I.V., POEDER VOOR OPLOSSING VOOR INJECTIE 200, 500, 1000 MG [Suspect]
     Route: 042
     Dates: start: 20090306
  4. ENDOXAN I.V., POEDER VOOR OPLOSSING VOOR INJECTIE 200, 500, 1000 MG [Suspect]
     Route: 042
     Dates: start: 20090310
  5. RITUXIMAB [Suspect]
     Indication: DIFFUSE LARGE B-CELL LYMPHOMA
     Route: 042
     Dates: start: 20081126, end: 20090407
  6. RITUXIMAB [Suspect]
     Route: 042
     Dates: start: 20090306
  7. RITUXIMAB [Suspect]
     Route: 042
     Dates: start: 20090407
  8. GRANULOCYTE COLONY STIMULATING FACTOR [Suspect]
     Indication: DIFFUSE LARGE B-CELL LYMPHOMA
     Route: 058
     Dates: start: 20081127
  9. DOXORUBICIN [Suspect]
     Indication: DIFFUSE LARGE B-CELL LYMPHOMA
     Route: 042
     Dates: start: 20081126
  10. DOXORUBICIN [Suspect]
     Route: 042
     Dates: start: 20090122
  11. DOXORUBICIN [Suspect]
     Route: 042
     Dates: start: 20090306
  12. DOXORUBICIN [Suspect]
     Route: 042
     Dates: start: 20090310
  13. VINCRISTINE [Suspect]
     Indication: DIFFUSE LARGE B-CELL LYMPHOMA
     Route: 042
     Dates: start: 20081126
  14. VINCRISTINE [Suspect]
     Route: 042
     Dates: start: 20090122
  15. VINCRISTINE [Suspect]
     Route: 042
     Dates: start: 20090306
  16. VINCRISTINE [Suspect]
     Route: 042
     Dates: start: 20090310
  17. PREDNISONE [Suspect]
     Indication: DIFFUSE LARGE B-CELL LYMPHOMA
     Route: 048
     Dates: start: 20081126
  18. PREDNISONE [Suspect]
     Route: 048
     Dates: start: 20090126
  19. PREDNISONE [Suspect]
     Route: 048
     Dates: start: 20090306
  20. PREDNISONE [Suspect]
     Route: 048
     Dates: start: 20090314

REACTIONS (6)
  - Pyrexia [Not Recovered/Not Resolved]
  - Febrile neutropenia [Recovered/Resolved]
  - Pharyngitis [Recovered/Resolved]
  - Viral upper respiratory tract infection [Recovered/Resolved]
  - Device related infection [Recovered/Resolved]
  - Cellulitis orbital [Recovered/Resolved]
